FAERS Safety Report 24429336 (Version 3)
Quarter: 2025Q1

REPORT INFORMATION
  Report Type: Report from Study
  Country: KR (occurrence: KR)
  Receive Date: 20241011
  Receipt Date: 20250106
  Transmission Date: 20250409
  Serious: Yes (Other)
  Sender: INCYTE
  Company Number: KR-002147023-NVSC2024KR130299

PATIENT

DRUGS (29)
  1. RUXOLITINIB [Suspect]
     Active Substance: RUXOLITINIB
     Indication: Graft versus host disease
     Route: 048
     Dates: start: 20240208, end: 20240421
  2. RUXOLITINIB [Suspect]
     Active Substance: RUXOLITINIB
     Route: 048
     Dates: start: 20240422, end: 20240502
  3. RUXOLITINIB [Suspect]
     Active Substance: RUXOLITINIB
     Route: 048
     Dates: start: 20240530, end: 20240630
  4. RUXOLITINIB [Suspect]
     Active Substance: RUXOLITINIB
     Route: 048
     Dates: start: 20240701, end: 20240711
  5. RUXOLITINIB [Suspect]
     Active Substance: RUXOLITINIB
     Route: 048
     Dates: start: 20240829, end: 20240911
  6. RUXOLITINIB [Suspect]
     Active Substance: RUXOLITINIB
     Route: 048
     Dates: start: 20240912, end: 20240919
  7. RUXOLITINIB [Suspect]
     Active Substance: RUXOLITINIB
     Route: 048
     Dates: start: 20240920, end: 20240924
  8. NOXAFIL [Concomitant]
     Active Substance: POSACONAZOLE
     Indication: Prophylaxis
     Dosage: 300 MG, QD
     Route: 048
     Dates: start: 20230210, end: 20240704
  9. SULFAMETHOXAZOLE\TRIMETHOPRIM [Concomitant]
     Active Substance: SULFAMETHOXAZOLE\TRIMETHOPRIM
     Indication: Prophylaxis
     Dosage: 1 DOSAGE FORM, QD
     Route: 048
     Dates: start: 20230309
  10. KANARB [Concomitant]
     Indication: Hypertension
     Dosage: 120 MG, QD
     Route: 048
     Dates: start: 20231121, end: 20240226
  11. CARVEDILOL [Concomitant]
     Active Substance: CARVEDILOL
     Indication: Hypertension
     Dosage: 12.5 MG, QD
     Route: 048
     Dates: start: 20230411, end: 20240226
  12. VIREAD [Concomitant]
     Active Substance: TENOFOVIR DISOPROXIL FUMARATE
     Indication: Hepatitis B antibody positive
     Dosage: 300 MG, QD
     Route: 048
     Dates: start: 20230402
  13. LEVOFLOXACIN [Concomitant]
     Active Substance: LEVOFLOXACIN
     Indication: Prophylaxis
     Dosage: 500 MG, QD
     Route: 048
     Dates: start: 20240214, end: 20240708
  14. BECLOMETHASONE DIPROPIONATE [Concomitant]
     Active Substance: BECLOMETHASONE DIPROPIONATE
     Indication: Prophylaxis
     Dosage: 5 MG, QD
     Route: 048
     Dates: start: 20240206, end: 20240510
  15. DAEIL LOPERAMIDE [Concomitant]
     Indication: Diarrhoea
     Dosage: 4 MG, QD
     Route: 048
     Dates: start: 20240202, end: 20240217
  16. MONTMORILLONITE [Concomitant]
     Active Substance: MONTMORILLONITE
     Indication: Graft versus host disease
     Dosage: 60 ML, QD
     Route: 048
     Dates: start: 20240202, end: 20240217
  17. CYCLOSPORINE [Concomitant]
     Active Substance: CYCLOSPORINE
     Indication: Prophylaxis
     Dosage: 75 MG, QD (SC)
     Route: 048
     Dates: start: 20240208, end: 20240317
  18. CYCLOSPORINE [Concomitant]
     Active Substance: CYCLOSPORINE
     Dosage: 50 MG, QD (SC)
     Route: 048
     Dates: start: 20240318
  19. LENOGRASTIM [Concomitant]
     Active Substance: LENOGRASTIM
     Indication: Prophylaxis
     Dosage: 250 UG, QD
     Route: 042
     Dates: start: 20240207, end: 20240219
  20. SUSPEN [PHENOXYMETHYLPENICILLIN POTASSIUM] [Concomitant]
     Indication: Prophylaxis
     Dosage: 1300 MG, QD (8 HOURS ER TAB)
     Route: 048
     Dates: start: 20240207, end: 20240219
  21. ORNITHINE ASPARTATE [Concomitant]
     Active Substance: ORNITHINE ASPARTATE
     Indication: Liver function test increased
     Dosage: 3000 MG, QD
     Route: 042
     Dates: start: 20240327, end: 20240403
  22. GODEX [ADENINE HYDROCHLORIDE;CARNITINE OROTATE;CYANOCOBALAMIN;LIVER;PY [Concomitant]
     Indication: Prophylaxis
     Dosage: 2802 MG, QD
     Route: 048
     Dates: start: 20240403, end: 20240408
  23. URSODIOL [Concomitant]
     Active Substance: URSODIOL
     Indication: Prophylaxis
     Dosage: 600 MG, QD
     Route: 048
     Dates: start: 20240403, end: 20240408
  24. EPILATAM [Concomitant]
     Indication: Meningitis
     Dosage: 1000 MG, QD
     Route: 048
     Dates: start: 20240507, end: 20240510
  25. KLENZO [Concomitant]
     Indication: Stomatitis
     Dosage: 1000 ML, QD (GARGLING)
     Route: 065
     Dates: start: 20240708
  26. OLIMEL E [Concomitant]
     Active Substance: AMINO ACIDS\DEXTROSE\ELECTROLYTES NOS\SOYBEAN OIL
     Indication: Stomatitis
     Dosage: 1000 ML, QD
     Route: 042
     Dates: start: 20240708, end: 20240801
  27. MAXIPIME [Concomitant]
     Active Substance: CEFEPIME HYDROCHLORIDE
     Indication: Stomatitis
     Dosage: 2 G, QD
     Route: 042
     Dates: start: 20240708, end: 20240712
  28. MAXIPIME [Concomitant]
     Active Substance: CEFEPIME HYDROCHLORIDE
     Indication: Pneumonia fungal
     Dosage: 3 G, QD
     Route: 042
     Dates: start: 20240930, end: 20241003
  29. KEPPRA [Concomitant]
     Active Substance: LEVETIRACETAM
     Indication: Seizure
     Dosage: 1500 MG, QD
     Route: 065
     Dates: start: 20240914

REACTIONS (4)
  - Adjustment disorder [Recovering/Resolving]
  - Cytomegalovirus test positive [Recovered/Resolved]
  - Pneumonia fungal [Not Recovered/Not Resolved]
  - Urinary retention [Not Recovered/Not Resolved]

NARRATIVE: CASE EVENT DATE: 20240425
